FAERS Safety Report 23996299 (Version 3)
Quarter: 2024Q3

REPORT INFORMATION
  Report Type: Spontaneous
  Country: SI (occurrence: SI)
  Receive Date: 20240620
  Receipt Date: 20240830
  Transmission Date: 20241017
  Serious: No
  Sender: MYLAN
  Company Number: SI-MYLANLABS-2024M1054134

PATIENT
  Sex: Female

DRUGS (1)
  1. EPIPEN [Suspect]
     Active Substance: EPINEPHRINE
     Indication: Product used for unknown indication
     Dosage: 2 MILLILITER, QD (2 ML 1X)
     Route: 065

REACTIONS (2)
  - Product colour issue [None]
  - Product quality issue [None]
